FAERS Safety Report 25473899 (Version 1)
Quarter: 2025Q2

REPORT INFORMATION
  Report Type: Spontaneous
  Country: JP (occurrence: JP)
  Receive Date: 20250624
  Receipt Date: 20250624
  Transmission Date: 20250717
  Serious: Yes (Death)
  Sender: MERCK SHARP & DOHME LLC
  Company Number: JP-009507513-2273436

PATIENT
  Age: 77 Year
  Sex: Male

DRUGS (3)
  1. CILASTATIN SODIUM\IMIPENEM [Suspect]
     Active Substance: CILASTATIN SODIUM\IMIPENEM
     Indication: Atypical mycobacterial infection
     Route: 041
     Dates: start: 20250318, end: 20250422
  2. AZITHROMYCIN [Concomitant]
     Active Substance: AZITHROMYCIN
     Route: 048
     Dates: start: 20250318
  3. CLOFAZIMINE [Concomitant]
     Active Substance: CLOFAZIMINE
     Route: 048
     Dates: start: 20250318

REACTIONS (5)
  - Atypical mycobacterial infection [Fatal]
  - Rheumatoid arthritis [Fatal]
  - Oedema peripheral [Unknown]
  - Product use in unapproved indication [Unknown]
  - Liver disorder [Unknown]

NARRATIVE: CASE EVENT DATE: 20250101
